FAERS Safety Report 8404061-4 (Version None)
Quarter: 2012Q2

REPORT INFORMATION
  Report Type: 
  Country: None (occurrence: None)
  Receive Date: 20120601
  Receipt Date: 20120521
  Transmission Date: 20120825
  Serious: Yes (Other)
  Sender: FDA-Public Use
  Company Number: US-MYLANLABS-2012S1010641

PATIENT
  Age: 43 Year
  Sex: Female

DRUGS (13)
  1. PACLITAXEL [Suspect]
     Indication: OVARIAN EPITHELIAL CANCER
     Dosage: 80 MG/M2 AS 1H INFUSION
     Route: 041
  2. DIPHENHYDRAMINE HCL [Concomitant]
     Indication: PREMEDICATION
     Dosage: 50MG
     Route: 065
  3. BEVACIZUMAB [Concomitant]
     Indication: OVARIAN EPITHELIAL CANCER
     Route: 065
  4. ONDANSETRON [Concomitant]
     Dosage: 24MG
     Route: 048
  5. DIPHENHYDRAMINE HCL [Concomitant]
     Dosage: 50MG
     Route: 042
  6. CARBOPLATIN [Concomitant]
     Indication: OVARIAN EPITHELIAL CANCER
     Route: 033
  7. ONDANSETRON [Concomitant]
     Indication: PREMEDICATION
     Dosage: 8MG
     Route: 065
  8. DEXAMETHASONE [Concomitant]
     Dosage: 20MG
     Route: 048
  9. DEXAMETHASONE [Concomitant]
     Dosage: 20MG
     Route: 042
  10. MORPHINE [Concomitant]
  11. DEXAMETHASONE [Concomitant]
     Indication: PREMEDICATION
     Dosage: 20MG
     Route: 065
  12. FAMOTIDINE [Concomitant]
     Indication: PREMEDICATION
     Dosage: 20MG
     Route: 042
  13. FAMOTIDINE [Concomitant]
     Dosage: 20MG
     Route: 042

REACTIONS (9)
  - DIZZINESS [None]
  - URINARY INCONTINENCE [None]
  - CHEST PAIN [None]
  - PAIN [None]
  - HYPERSENSITIVITY [None]
  - APNOEA [None]
  - FLUSHING [None]
  - UNRESPONSIVE TO STIMULI [None]
  - NAUSEA [None]
